FAERS Safety Report 8202025-7 (Version None)
Quarter: 2012Q1

REPORT INFORMATION
  Report Type: 
  Country: None (occurrence: None)
  Receive Date: 20120312
  Receipt Date: 20110606
  Transmission Date: 20120608
  Serious: Yes (Life-Threatening, Hospitalization)
  Sender: FDA-Public Use
  Company Number: JP-MERCK-1104USA03903

PATIENT
  Age: 82 Year
  Sex: Male
  Weight: 67 kg

DRUGS (24)
  1. AMARYL [Concomitant]
     Route: 048
     Dates: start: 20110412
  2. MICARDIS [Concomitant]
     Indication: HYPERTENSION
     Route: 048
     Dates: start: 20110126, end: 20110329
  3. MICARDIS [Concomitant]
     Route: 048
     Dates: start: 20110412
  4. CONIEL [Concomitant]
     Indication: HYPERTENSION
     Route: 048
     Dates: start: 20070314, end: 20110329
  5. LIPITOR [Concomitant]
     Indication: DYSLIPIDAEMIA
     Route: 048
     Dates: start: 20060428, end: 20110329
  6. ALLOPURINOL [Concomitant]
     Indication: HYPERURICAEMIA
     Route: 048
     Dates: start: 20060428, end: 20110329
  7. LANSOPRAZOLE [Concomitant]
     Dosage: DIVIDED DOSE FREQUENCY UNKNOWN
     Route: 048
     Dates: start: 20110412
  8. JANUVIA [Suspect]
     Route: 048
     Dates: start: 20110412
  9. ACTOS [Concomitant]
     Indication: DIABETES MELLITUS
     Dosage: DAILY DOSAGE UNKNOWN
     Route: 048
     Dates: start: 20061027, end: 20110329
  10. CLARITIN [Concomitant]
     Indication: URTICARIA CHRONIC
     Dosage: TABLETS
     Route: 048
     Dates: start: 20060326, end: 20110329
  11. AMARYL [Concomitant]
     Dosage: DAILY DOSAGE UNKNOWN
     Route: 048
     Dates: start: 20100127, end: 20110224
  12. LIPITOR [Concomitant]
     Route: 048
     Dates: start: 20110412
  13. ALLOPURINOL [Concomitant]
     Route: 048
     Dates: start: 20110412
  14. CLARITIN [Concomitant]
     Dosage: TABLETS
     Route: 048
     Dates: start: 20110412
  15. LANTUS [Concomitant]
     Indication: DIABETES MELLITUS
     Dosage: DAILY DOSAGE UNKNOWN
     Route: 058
  16. AMARYL [Concomitant]
     Indication: DIABETES MELLITUS
     Dosage: DAILY DOSAGE UNKNOWN
     Route: 048
     Dates: start: 20110225, end: 20110329
  17. METFORMIN HCL [Concomitant]
     Route: 048
     Dates: start: 20110412
  18. MICARDIS [Concomitant]
     Route: 048
     Dates: start: 20060428, end: 20110125
  19. HUMALOG [Concomitant]
     Indication: DIABETES MELLITUS
     Dosage: DAILY DOSAGE UNKNOWN
     Route: 058
  20. ACTOS [Concomitant]
     Dosage: DAILY DOSAGE UNKNOWN
     Route: 048
     Dates: start: 20110412
  21. METFORMIN HCL [Concomitant]
     Indication: DIABETES MELLITUS
     Route: 048
     Dates: start: 20061027, end: 20110329
  22. CONIEL [Concomitant]
     Route: 048
     Dates: start: 20110412
  23. JANUVIA [Suspect]
     Indication: DIABETES MELLITUS
     Route: 048
     Dates: start: 20110225, end: 20110329
  24. GLYBURIDE [Concomitant]
     Indication: DIABETES MELLITUS
     Route: 048
     Dates: start: 20060526, end: 20100126

REACTIONS (4)
  - ILEUS [None]
  - INFECTIOUS PERITONITIS [None]
  - GASTRIC CANCER [None]
  - DUODENAL ULCER PERFORATION [None]
